FAERS Safety Report 20469671 (Version 1)
Quarter: 2022Q1

REPORT INFORMATION
  Report Type: Spontaneous
  Country: US (occurrence: None)
  Receive Date: 20220213
  Receipt Date: 20220213
  Transmission Date: 20220423
  Serious: Yes (Hospitalization)
  Sender: FDA-Public Use
  Company Number: None

PATIENT
  Age: 45 Year
  Sex: Female
  Weight: 95.5 kg

DRUGS (1)
  1. RETACRIT [Suspect]
     Active Substance: EPOETIN ALFA-EPBX
     Indication: Anaemia
     Dosage: FREQUENCY : AS NEEDED;?
     Route: 040
     Dates: start: 20220209, end: 20220209

REACTIONS (8)
  - Haemodialysis [None]
  - Leg amputation [None]
  - Normocytic anaemia [None]
  - Gastrooesophageal reflux disease [None]
  - Staphylococcal bacteraemia [None]
  - Sepsis [None]
  - Depression [None]
  - Neck pain [None]

NARRATIVE: CASE EVENT DATE: 20220212
